FAERS Safety Report 7345701-0 (Version None)
Quarter: 2011Q1

REPORT INFORMATION
  Report Type: 
  Country: None (occurrence: None)
  Receive Date: 20110310
  Receipt Date: 20110225
  Transmission Date: 20110831
  Serious: Yes (Hospitalization)
  Sender: FDA-Public Use
  Company Number: IT-MYLANLABS-2011S1003995

PATIENT
  Age: 74 Year
  Sex: Female

DRUGS (3)
  1. AMITRIPTYLINE [Concomitant]
     Indication: DEPRESSION
     Route: 065
  2. LORAZEPAM [Concomitant]
     Indication: DEPRESSION
     Route: 065
  3. CLARITHROMYCIN [Suspect]
     Indication: BRONCHITIS
     Route: 065

REACTIONS (1)
  - STATUS EPILEPTICUS [None]
